FAERS Safety Report 4697289-0 (Version None)
Quarter: 2005Q2

REPORT INFORMATION
  Report Type: 
  Country: None (occurrence: None)
  Receive Date: 20050622
  Receipt Date: 20050616
  Transmission Date: 20051028
  Serious: Yes (Hospitalization)
  Sender: FDA-Public Use
  Company Number: 2005PK01059

PATIENT
  Age: 56 Year
  Sex: Female

DRUGS (4)
  1. METOPROLOL SUCCINATE [Suspect]
     Route: 048
  2. AMARYL [Interacting]
     Route: 048
     Dates: end: 20050429
  3. ELTROXIN [Concomitant]
     Route: 048
  4. DIOVAN HCT [Concomitant]
     Route: 048

REACTIONS (4)
  - DRUG INTERACTION [None]
  - FAECAL INCONTINENCE [None]
  - FEELING ABNORMAL [None]
  - HYPOGLYCAEMIC COMA [None]
